FAERS Safety Report 15264001 (Version 1)
Quarter: 2018Q3

REPORT INFORMATION
  Report Type: Spontaneous
  Country: NL (occurrence: NL)
  Receive Date: 20180810
  Receipt Date: 20180810
  Transmission Date: 20181010
  Serious: Yes (Other)
  Sender: FDA-Public Use
  Company Number: NL-FRESENIUS KABI-FK201808596

PATIENT
  Age: 34 Year
  Sex: Female

DRUGS (2)
  1. REMIFENTANIL [Concomitant]
     Active Substance: REMIFENTANIL
     Indication: ANALGESIC THERAPY
     Route: 065
  2. OXYTOCIN INJECTION (MANUFACTURER UNKNOWN) [Suspect]
     Active Substance: OXYTOCIN
     Indication: LABOUR AUGMENTATION
     Dosage: STARTED AT 0,1 IU PER HOUR AND INCREASED TO A MAXIMUM OF 0,2 IU PER HOUR UNTIL CONTRACTIONS WERE DEE
     Route: 041

REACTIONS (1)
  - Vulvovaginal injury [Recovered/Resolved]
